FAERS Safety Report 5732211-7 (Version None)
Quarter: 2008Q2

REPORT INFORMATION
  Report Type: 
  Country: None (occurrence: None)
  Receive Date: 20080508
  Receipt Date: 20080507
  Transmission Date: 20081010
  Serious: Yes (Other)
  Sender: FDA-Public Use
  Company Number: IT-BOEHRINGER INGELHEIM GMBH, GERMANY-2008-DE-02703GD

PATIENT

DRUGS (1)
  1. SERTRALINE [Suspect]
     Indication: ANOREXIA NERVOSA

REACTIONS (1)
  - MANIA [None]
